FAERS Safety Report 8841923 (Version 1)
Quarter: 2012Q4

REPORT INFORMATION
  Report Type: Spontaneous
  Country: US (occurrence: None)
  Receive Date: 20121015
  Receipt Date: 20121015
  Transmission Date: 20130627
  Serious: Yes (Life-Threatening)
  Sender: FDA-Public Use
  Company Number: None

PATIENT
  Age: 64 Year
  Sex: Male
  Weight: 75.5 kg

DRUGS (7)
  1. LANTUS [Suspect]
     Indication: TYPE I DIABETES MELLITUS
     Dosage: many years, at least since 2008; every 24 hours
     Route: 058
     Dates: start: 2008
  2. NOVOLOG [Suspect]
     Dosage: many years, at least sice 2004
     Route: 058
     Dates: start: 2004
  3. SIMVASTATIN [Concomitant]
  4. LISINOPRIL/HYDROCHLOROTHIAZIDE [Concomitant]
  5. LEVOTHYROXINE [Concomitant]
  6. FLUTICASONE NASAL SPRAY [Concomitant]
  7. ASPIRIN [Concomitant]

REACTIONS (11)
  - Injury associated with device [None]
  - Hypoglycaemia [None]
  - Loss of consciousness [None]
  - Disorientation [None]
  - Road traffic accident [None]
  - Sternal fracture [None]
  - Pleural effusion [None]
  - Head injury [None]
  - Cardiac contusion [None]
  - Syncope [None]
  - Circumstance or information capable of leading to medication error [None]
